FAERS Safety Report 13374293 (Version 1)
Quarter: 2017Q1

REPORT INFORMATION
  Report Type: Report from Study
  Country: BR (occurrence: BR)
  Receive Date: 20170327
  Receipt Date: 20170327
  Transmission Date: 20170429
  Serious: Yes (Other)
  Sender: FDA-Public Use
  Company Number: BR-INGENUS PHARMACEUTICALS NJ, LLC-ING201703-000138

PATIENT
  Age: 68 Year
  Sex: Male

DRUGS (1)
  1. CARISOPRODOL AND ASPIRIN [Suspect]
     Active Substance: ASPIRIN\CARISOPRODOL

REACTIONS (2)
  - Urticaria [Unknown]
  - Rash [Unknown]
